FAERS Safety Report 5700729-9 (Version None)
Quarter: 2008Q2

REPORT INFORMATION
  Report Type: 
  Country: None (occurrence: None)
  Receive Date: 20080410
  Receipt Date: 20080130
  Transmission Date: 20081010
  Serious: No
  Sender: FDA-Public Use
  Company Number: A0706368A

PATIENT
  Sex: Female

DRUGS (2)
  1. TYKERB [Suspect]
     Indication: BREAST CANCER
     Dosage: 750MG PER DAY
     Route: 048
  2. XELODA [Concomitant]
     Indication: BREAST CANCER
     Route: 048

REACTIONS (2)
  - ARTHRALGIA [None]
  - RASH [None]
